FAERS Safety Report 21812701 (Version 1)
Quarter: 2022Q4

REPORT INFORMATION
  Report Type: Spontaneous
  Country: US (occurrence: None)
  Receive Date: 20221231
  Receipt Date: 20221231
  Transmission Date: 20230113
  Serious: No
  Sender: FDA-Public Use
  Company Number: None

PATIENT
  Age: 60 Year
  Sex: Male
  Weight: 67.05 kg

DRUGS (4)
  1. XYWAV [Suspect]
     Active Substance: CALCIUM OXYBATE\MAGNESIUM OXYBATE\POTASSIUM OXYBATE\SODIUM OXYBATE
     Indication: Hypersomnia
     Dosage: FREQUENCY : TWICE A DAY;?
     Route: 048
     Dates: start: 20220425, end: 20221229
  2. LISINOPRIL [Concomitant]
     Active Substance: LISINOPRIL
  3. ALFUZOSIN [Concomitant]
     Active Substance: ALFUZOSIN
  4. TREMFYA [Concomitant]
     Active Substance: GUSELKUMAB

REACTIONS (2)
  - Alopecia [None]
  - Weight decreased [None]

NARRATIVE: CASE EVENT DATE: 20220801
